FAERS Safety Report 14772215 (Version 2)
Quarter: 2018Q2

REPORT INFORMATION
  Report Type: Spontaneous
  Country: PL (occurrence: PL)
  Receive Date: 20180418
  Receipt Date: 20180509
  Transmission Date: 20180711
  Serious: Yes (Other)
  Sender: FDA-Public Use
  Company Number: PL-ALVOGEN-2018-ALVOGEN-095785

PATIENT
  Age: 57 Year
  Sex: Male

DRUGS (9)
  1. FLUOXETINE [Suspect]
     Active Substance: FLUOXETINE HYDROCHLORIDE
     Indication: FIBROMYALGIA
     Dosage: 2 X 20MG AT THE MORNING AND EVENING (80 MG,1 D)
     Route: 048
  2. ZOLPIDEM [Suspect]
     Active Substance: ZOLPIDEM\ZOLPIDEM TARTRATE
     Indication: SLEEP DISORDER
     Dosage: 1 X 10 MG; AT BED TIME (10 MG)
     Route: 048
  3. ZOLPIDEM [Suspect]
     Active Substance: ZOLPIDEM\ZOLPIDEM TARTRATE
     Indication: INSOMNIA
     Dosage: 1 X 10 MG; AT BED TIME (10 MG)
     Route: 048
  4. MIANSERIN [Suspect]
     Active Substance: MIANSERIN
     Indication: NIGHTMARE
     Dosage: HALF AN HOUR BEFORE BEDTIME (20 MG,1 D)
  5. DIAZEPAM. [Suspect]
     Active Substance: DIAZEPAM
     Indication: INITIAL INSOMNIA
  6. DIAZEPAM. [Suspect]
     Active Substance: DIAZEPAM
     Indication: NIGHTMARE
  7. METFORMIN [Concomitant]
     Active Substance: METFORMIN HYDROCHLORIDE
     Indication: TYPE 2 DIABETES MELLITUS
  8. MIANSERIN [Suspect]
     Active Substance: MIANSERIN
     Indication: INSOMNIA
     Dosage: HALF AN HOUR BEFORE BEDTIME (20 MG,1 D)
  9. METFORMIN [Concomitant]
     Active Substance: METFORMIN HYDROCHLORIDE
     Indication: INSOMNIA

REACTIONS (10)
  - Somnolence [Recovering/Resolving]
  - Blood glucose fluctuation [Recovering/Resolving]
  - Off label use [Recovered/Resolved]
  - Drug interaction [Unknown]
  - Dry mouth [Recovering/Resolving]
  - Abnormal dreams [Recovering/Resolving]
  - Drug ineffective [Recovering/Resolving]
  - Impaired self-care [Unknown]
  - Poor quality sleep [Recovered/Resolved]
  - Initial insomnia [Recovered/Resolved]
